FAERS Safety Report 9014021 (Version 1)
Quarter: 2013Q1

REPORT INFORMATION
  Report Type: Spontaneous
  Country: DK (occurrence: DK)
  Receive Date: 20130115
  Receipt Date: 20130115
  Transmission Date: 20140127
  Serious: Yes (Other)
  Sender: FDA-Public Use
  Company Number: DK-PFIZER INC-2013012796

PATIENT
  Age: 80 Year
  Sex: Male

DRUGS (9)
  1. METRONIDAZOLE [Suspect]
     Indication: PSEUDOMEMBRANOUS COLITIS
     Dosage: UNK
  2. VANCOMYCIN HCL [Suspect]
     Indication: PSEUDOMEMBRANOUS COLITIS
     Dosage: UNK
     Route: 048
  3. BICALUTAMIDE [Concomitant]
     Dosage: UNK
  4. SOLIFENACIN [Concomitant]
     Dosage: UNK
  5. TAMSULOSIN [Concomitant]
     Dosage: UNK
  6. SIMVASTATIN [Concomitant]
     Dosage: UNK
  7. LOSARTAN [Concomitant]
     Dosage: UNK
  8. CLOPIDOGREL [Concomitant]
     Dosage: UNK
  9. DICLOXACILLIN [Concomitant]
     Indication: ANTIBIOTIC PROPHYLAXIS
     Dosage: 2 G TOTAL
     Route: 042

REACTIONS (2)
  - Pseudomembranous colitis [Unknown]
  - Disease progression [Unknown]
